FAERS Safety Report 9490464 (Version 3)
Quarter: 2013Q4

REPORT INFORMATION
  Report Type: Spontaneous
  Country: US (occurrence: US)
  Receive Date: 20130830
  Receipt Date: 20131007
  Transmission Date: 20140711
  Serious: Yes (Hospitalization, Other)
  Sender: FDA-Public Use
  Company Number: US-AMGEN-USASP2013060679

PATIENT
  Age: 62 Year
  Sex: Female
  Weight: 72.11 kg

DRUGS (4)
  1. ENBREL [Suspect]
     Indication: PSORIASIS
     Dosage: 50 MG, QWK
     Route: 065
     Dates: start: 20030708
  2. SYNTHROID [Concomitant]
     Dosage: 112 MUG, DAILY
     Route: 048
  3. BUDESONIDE [Concomitant]
     Dosage: 9 MG, Q OTHER DAY
  4. MESALAMINE [Concomitant]
     Dosage: 1.5 UNK, DAILY
     Route: 048

REACTIONS (9)
  - Deep vein thrombosis [Recovering/Resolving]
  - Pulmonary embolism [Recovering/Resolving]
  - Dyspnoea [Unknown]
  - Pulmonary infarction [Unknown]
  - Malignant melanoma [Unknown]
  - Tinnitus [Unknown]
  - Pleural effusion [Unknown]
  - Atelectasis [Unknown]
  - Lymphadenopathy [Unknown]
